FAERS Safety Report 17210467 (Version 1)
Quarter: 2019Q4

REPORT INFORMATION
  Report Type: Spontaneous
  Country: US (occurrence: US)
  Receive Date: 20191227
  Receipt Date: 20191227
  Transmission Date: 20200122
  Serious: No
  Sender: FDA-Public Use
  Company Number: US-ASTRAZENECA-2019SF88224

PATIENT
  Sex: Male
  Weight: 115 kg

DRUGS (4)
  1. LEVEMIR [Concomitant]
     Active Substance: INSULIN DETEMIR
     Indication: TYPE 2 DIABETES MELLITUS
     Dosage: AT NIGHT
     Route: 058
  2. BYDUREON [Suspect]
     Active Substance: EXENATIDE
     Indication: TYPE 2 DIABETES MELLITUS
     Route: 058
     Dates: start: 20180907
  3. BYDUREON BCISE [Suspect]
     Active Substance: EXENATIDE
     Indication: TYPE 2 DIABETES MELLITUS
     Route: 065
  4. INSULIN HUMULIN R U500 [Concomitant]
     Indication: TYPE 2 DIABETES MELLITUS
     Dosage: 20U IN AM, 30 AT LUNCH, 50 IN EVENING, BEEN TAKING FOR YEARS
     Route: 058

REACTIONS (7)
  - Haemorrhage [Unknown]
  - Incorrect dose administered by device [Unknown]
  - Device defective [Unknown]
  - Connective tissue disorder [Unknown]
  - Scar [Unknown]
  - Wrong technique in device usage process [Unknown]
  - Injection site pain [Unknown]
